FAERS Safety Report 6264397-2 (Version None)
Quarter: 2009Q3

REPORT INFORMATION
  Report Type: 
  Country: None (occurrence: None)
  Receive Date: 20090710
  Receipt Date: 20090703
  Transmission Date: 20100115
  Serious: Yes (Hospitalization)
  Sender: FDA-Public Use
  Company Number: B0582057A

PATIENT
  Sex: Male

DRUGS (8)
  1. DEROXAT [Suspect]
     Indication: DEPRESSION
     Dosage: 10MG PER DAY
     Route: 048
     Dates: start: 20020101, end: 20090424
  2. TERCIAN [Suspect]
     Indication: DEPRESSION
     Dosage: 25MG PER DAY
     Route: 048
     Dates: start: 20020101, end: 20090424
  3. INDAPAMIDE [Suspect]
     Indication: HYPERTENSION
     Dosage: 1.5MG PER DAY
     Route: 048
     Dates: end: 20090424
  4. PROPRANOLOL HYDROCHLORIDE [Concomitant]
     Indication: HYPERTENSION
     Route: 065
  5. SERESTA [Concomitant]
     Indication: DEPRESSION
     Route: 065
  6. CARBOCYSTEINE [Concomitant]
     Route: 065
  7. GOMENOL [Concomitant]
     Route: 055
  8. BEFIZAL [Concomitant]
     Route: 065

REACTIONS (6)
  - AKINESIA [None]
  - EXTRAPYRAMIDAL DISORDER [None]
  - FALL [None]
  - HYPERTONIA [None]
  - PARKINSONISM [None]
  - TREMOR [None]
